FAERS Safety Report 25099772 (Version 1)
Quarter: 2025Q1

REPORT INFORMATION
  Report Type: Spontaneous
  Country: RU (occurrence: RU)
  Receive Date: 20250320
  Receipt Date: 20250320
  Transmission Date: 20250409
  Serious: Yes (Other)
  Sender: Haleon PLC
  Company Number: RU-HALEON-2179855

PATIENT
  Age: 39 Year
  Sex: Female
  Weight: 54 kg

DRUGS (2)
  1. DICLOFENAC [Suspect]
     Active Substance: DICLOFENAC
     Indication: Back pain
  2. KETOROLAC [Suspect]
     Active Substance: KETOROLAC TROMETHAMINE
     Indication: Back pain

REACTIONS (4)
  - Melaena [Recovering/Resolving]
  - Abdominal pain upper [Recovered/Resolved]
  - Gastrointestinal disorder [Recovering/Resolving]
  - Dyspepsia [Recovered/Resolved]
